FAERS Safety Report 4694013-2 (Version None)
Quarter: 2005Q2

REPORT INFORMATION
  Report Type: 
  Country: None (occurrence: None)
  Receive Date: 20050616
  Receipt Date: 20050603
  Transmission Date: 20051028
  Serious: No
  Sender: FDA-Public Use
  Company Number: 2005SP001011

PATIENT
  Age: 48 Year
  Weight: 74.8435 kg

DRUGS (2)
  1. LUNESTA [Suspect]
     Dosage: 3 MG;HS; ORAL
     Route: 048
     Dates: start: 20050101
  2. DARVOCET [Suspect]
     Indication: PAIN

REACTIONS (3)
  - HYPERSENSITIVITY [None]
  - PHARYNGEAL OEDEMA [None]
  - RESPIRATORY ARREST [None]
